FAERS Safety Report 15965617 (Version 1)
Quarter: 2019Q1

REPORT INFORMATION
  Report Type: Spontaneous
  Country: PT (occurrence: PT)
  Receive Date: 20190215
  Receipt Date: 20190215
  Transmission Date: 20190418
  Serious: Yes (Death, Other)
  Sender: FDA-Public Use
  Company Number: PT-009507513-1902PRT002796

PATIENT
  Age: 60 Year
  Sex: Male

DRUGS (3)
  1. RIBAVIRIN. [Suspect]
     Active Substance: RIBAVIRIN
     Indication: HEPATITIS C
     Dosage: UNK
     Route: 048
  2. LEDIPASVIR (+) SOFOSBUVIR [Suspect]
     Active Substance: LEDIPASVIR\SOFOSBUVIR
     Indication: HEPATITIS C
     Dosage: UNK
  3. ATAZANAVIR (+) EMTRICITABINE (+) RITONAVIR (+) TENOFOVIR [Concomitant]
     Indication: HIV TEST POSITIVE
     Dosage: UNK

REACTIONS (2)
  - Diabetic metabolic decompensation [Fatal]
  - Sepsis [Fatal]
